FAERS Safety Report 18640283 (Version 1)
Quarter: 2020Q4

REPORT INFORMATION
  Report Type: Spontaneous
  Country: US (occurrence: US)
  Receive Date: 20201220
  Receipt Date: 20201220
  Transmission Date: 20210114
  Serious: No
  Sender: FDA-Public Use
  Company Number: US-PERRIGO-20US004089

PATIENT
  Age: 87 Year
  Sex: Female
  Weight: 66.21 kg

DRUGS (3)
  1. MUPIROCIN. [Suspect]
     Active Substance: MUPIROCIN
     Indication: ACNE
     Dosage: A LITTLE BIT, SINGLE
     Route: 045
     Dates: start: 20200309, end: 20200309
  2. MUPIROCIN. [Suspect]
     Active Substance: MUPIROCIN
     Dosage: A LITTLE BIT, TWICE
     Route: 045
     Dates: start: 20200310, end: 20200310
  3. AMOXICILLIN CIMEX [Concomitant]
     Indication: ACNE
     Dosage: 875 MG TO 125 MG TABLET
     Route: 065
     Dates: start: 20200309

REACTIONS (2)
  - Product administered at inappropriate site [Recovered/Resolved]
  - Off label use [Recovered/Resolved]

NARRATIVE: CASE EVENT DATE: 20200309
